FAERS Safety Report 24147611 (Version 1)
Quarter: 2024Q3

REPORT INFORMATION
  Report Type: Spontaneous
  Country: NZ (occurrence: None)
  Receive Date: 20240727
  Receipt Date: 20240727
  Transmission Date: 20241016
  Serious: No
  Sender: Public
  Company Number: None

PATIENT
  Age: 55 Year
  Sex: Female
  Weight: 72 kg

DRUGS (3)
  1. CLINDAMYCIN [Suspect]
     Active Substance: CLINDAMYCIN
     Indication: Bacterial vaginosis
     Dosage: 28 TABLETS TWICE A DAY ORAL?
     Route: 048
     Dates: start: 20240725
  2. METRONIDAZOLE [Concomitant]
     Active Substance: METRONIDAZOLE
  3. NAPROXEN [Concomitant]
     Active Substance: NAPROXEN

REACTIONS (1)
  - Diarrhoea [None]

NARRATIVE: CASE EVENT DATE: 20240725
